FAERS Safety Report 8392963-7 (Version None)
Quarter: 2012Q2

REPORT INFORMATION
  Report Type: 
  Country: None (occurrence: None)
  Receive Date: 20120529
  Receipt Date: 20120522
  Transmission Date: 20120825
  Serious: Yes (Disabling, Other)
  Sender: FDA-Public Use
  Company Number: US-ASTRAZENECA-2012SE15613

PATIENT
  Age: 63 Year
  Sex: Female

DRUGS (2)
  1. NEXIUM [Suspect]
     Route: 048
  2. CRESTOR [Suspect]
     Route: 048

REACTIONS (6)
  - VASOSPASM [None]
  - BLINDNESS [None]
  - MIGRAINE [None]
  - CEREBROVASCULAR ACCIDENT [None]
  - ARTHRITIS [None]
  - DRUG DOSE OMISSION [None]
